FAERS Safety Report 9962283 (Version 1)
Quarter: 2014Q1

REPORT INFORMATION
  Report Type: Report from Study
  Country: US (occurrence: US)
  Receive Date: 20140305
  Receipt Date: 20140305
  Transmission Date: 20141002
  Serious: No
  Sender: FDA-Public Use
  Company Number: US-ABBVIE-13P-163-1112876-00

PATIENT
  Age: 39 Year
  Sex: Male

DRUGS (3)
  1. HUMIRA [Suspect]
     Indication: CROHN^S DISEASE
     Dates: start: 201212, end: 201212
  2. HUMIRA [Suspect]
     Dates: start: 201212, end: 201212
  3. HUMIRA [Suspect]
     Dates: start: 201301

REACTIONS (3)
  - Muscle spasms [Recovered/Resolved]
  - Device malfunction [Recovered/Resolved]
  - Incorrect dose administered [Unknown]
